FAERS Safety Report 19176410 (Version 1)
Quarter: 2021Q2

REPORT INFORMATION
  Report Type: Report from Study
  Country: US (occurrence: US)
  Receive Date: 20210423
  Receipt Date: 20210423
  Transmission Date: 20210717
  Serious: Yes (Other)
  Sender: FDA-Public Use
  Company Number: US-JAZZ-2021-US-007039

PATIENT
  Age: 48 Year
  Sex: Female

DRUGS (1)
  1. XYWAV [Suspect]
     Active Substance: CALCIUM OXYBATE\MAGNESIUM OXYBATE\POTASSIUM OXYBATE\SODIUM OXYBATE
     Indication: NARCOLEPSY
     Dosage: 3.75 GRAM, BID
     Route: 048
     Dates: start: 202012

REACTIONS (1)
  - Seizure [Unknown]

NARRATIVE: CASE EVENT DATE: 202001
